FAERS Safety Report 5257189-4 (Version None)
Quarter: 2007Q1

REPORT INFORMATION
  Report Type: 
  Country: None (occurrence: None)
  Receive Date: 20070307
  Receipt Date: 20070305
  Transmission Date: 20070707
  Serious: Yes (Hospitalization, Other)
  Sender: FDA-Public Use
  Company Number: US-GLAXOSMITHKLINE-A0641880A

PATIENT
  Age: 70 Year
  Sex: Female

DRUGS (2)
  1. VALTREX [Suspect]
     Route: 048
     Dates: start: 20070224
  2. NO CONCURRENT MEDICATION [Concomitant]

REACTIONS (3)
  - ANAEMIA [None]
  - DIARRHOEA HAEMORRHAGIC [None]
  - VOMITING [None]
